FAERS Safety Report 5156656-1 (Version None)
Quarter: 2006Q4

REPORT INFORMATION
  Report Type: 
  Country: None (occurrence: None)
  Receive Date: 20061115
  Receipt Date: 20061031
  Transmission Date: 20070319
  Serious: Yes (Hospitalization)
  Sender: FDA-Public Use
  Company Number: 2006S1010239

PATIENT
  Age: 15 Year
  Sex: Female

DRUGS (5)
  1. METHOTREXATE [Suspect]
     Indication: JUVENILE ARTHRITIS
     Dosage: 25 MG; QW; PO
     Route: 048
     Dates: start: 20060208
  2. PREDNISONE TAB [Suspect]
     Indication: JUVENILE ARTHRITIS
     Dosage: 50 MG; QOD; PO
     Route: 048
     Dates: start: 20060630
  3. NAPROSYN [Suspect]
     Indication: JUVENILE ARTHRITIS
     Dosage: 500 MG; BID; PO
     Route: 048
     Dates: start: 20060131, end: 20060825
  4. FOLIC ACID [Concomitant]
  5. LANSOPRAZOLE [Concomitant]

REACTIONS (8)
  - ABDOMINAL PAIN [None]
  - ALCOHOL USE [None]
  - DIZZINESS [None]
  - GASTRITIS [None]
  - HAEMATOCRIT DECREASED [None]
  - HAEMOGLOBIN DECREASED [None]
  - OCCULT BLOOD POSITIVE [None]
  - TACHYCARDIA [None]
